FAERS Safety Report 16905944 (Version 2)
Quarter: 2022Q4

REPORT INFORMATION
  Report Type: Spontaneous
  Country: US (occurrence: US)
  Receive Date: 20191010
  Receipt Date: 20221014
  Transmission Date: 20230113
  Serious: Yes (Disabling)
  Sender: FDA-Public Use
  Company Number: US-TEVA-2019-US-1119668

PATIENT
  Sex: Female

DRUGS (1)
  1. DOCETAXEL [Suspect]
     Active Substance: DOCETAXEL
     Indication: Product used for unknown indication
     Dosage: EVERY 3 WEEKS, 1 CYCLE
     Route: 065
     Dates: start: 20140701, end: 20140722

REACTIONS (1)
  - Alopecia [Not Recovered/Not Resolved]
